FAERS Safety Report 5195245-X (Version None)
Quarter: 2006Q4

REPORT INFORMATION
  Report Type: 
  Country: None (occurrence: None)
  Receive Date: 20061229
  Receipt Date: 20061027
  Transmission Date: 20070319
  Serious: Yes (Disabling)
  Sender: FDA-Public Use
  Company Number: JP-PFIZER INC-2006133216

PATIENT
  Age: 59 Year
  Sex: Male

DRUGS (3)
  1. ATARAX [Suspect]
     Dosage: DAILY DOSE:25MG
     Route: 030
     Dates: start: 20060815, end: 20060815
  2. ATROPINE SULFATE [Suspect]
     Dosage: DAILY DOSE:.5MG
     Route: 030
     Dates: start: 20060815, end: 20060815
  3. BUSCOPAN [Suspect]
     Dosage: DAILY DOSE:20MG
     Route: 030
     Dates: start: 20060815, end: 20060815

REACTIONS (1)
  - MUSCLE ATROPHY [None]
